FAERS Safety Report 4998568-X (Version None)
Quarter: 2006Q2

REPORT INFORMATION
  Report Type: 
  Country: None (occurrence: None)
  Receive Date: 20060508
  Receipt Date: 20060427
  Transmission Date: 20061013
  Serious: Yes (Other)
  Sender: FDA-Public Use
  Company Number: HQWYE722810APR06

PATIENT
  Age: 69 Year
  Sex: Female

DRUGS (1)
  1. MYLOTARG [Suspect]
     Indication: ACUTE MYELOID LEUKAEMIA
     Dosage: INTRAVENOUS DRIP
     Route: 041
     Dates: start: 20060405, end: 20060405

REACTIONS (1)
  - PULMONARY OEDEMA [None]
